FAERS Safety Report 10241946 (Version 1)
Quarter: 2014Q1

REPORT INFORMATION
  Report Type: Spontaneous
  Country: US (occurrence: None)
  Receive Date: 20140306
  Receipt Date: 20140306
  Transmission Date: 20141002
  Serious: Yes (Other)
  Sender: FDA-Public Use
  Company Number: 163-21880-13124654

PATIENT
  Age: 67 Year
  Sex: Female

DRUGS (9)
  1. SYMBICORT/VENTOLIN HFA (SYMBICORT TURNUHALER ^DRACO^) INHALENT) [Concomitant]
  2. NEULASTA (PEGFILGRASTIM) (UNKNOWN) [Concomitant]
  3. MULTIVITAMINS (UNKNOWN) [Concomitant]
  4. REVLIMID (LENALIDOMIDE) (15 MILLIGRAM, CAPSULES) [Suspect]
     Indication: MANTLE CELL LYMPHOMA
     Route: 048
     Dates: start: 20131011, end: 201312
  5. JANUVIA (SITAGLIPTIN PHOSPHATE) (UNKNOWN) [Concomitant]
  6. ACTOS (PIOGLITAZONE) (UNKNOWN) [Concomitant]
  7. DIOVAN HCT (CO-DIOVAN) (UNKNOWN) [Concomitant]
  8. LIPITOR (ATORVASTATIN) (UNKNOWN) [Concomitant]
  9. ASPIRIN (ACETYLSALICYLIC ACID) (UNKNOWN) (ACETYLSALICYLIC ACID) [Concomitant]

REACTIONS (2)
  - Neutropenia [None]
  - Thrombosis [None]
